FAERS Safety Report 25871754 (Version 1)
Quarter: 2025Q4

REPORT INFORMATION
  Report Type: Spontaneous
  Country: US (occurrence: US)
  Receive Date: 20251001
  Receipt Date: 20251001
  Transmission Date: 20260117
  Serious: No
  Sender: RECKITT BENCKISER
  Company Number: US-INDIVIOR US-INDV-166700-2025

PATIENT
  Sex: Female

DRUGS (3)
  1. SUBOXONE [Suspect]
     Active Substance: BUPRENORPHINE HYDROCHLORIDE\NALOXONE HYDROCHLORIDE
     Indication: Drug dependence
     Dosage: UNK
     Route: 065
  2. SUBOXONE [Suspect]
     Active Substance: BUPRENORPHINE HYDROCHLORIDE\NALOXONE HYDROCHLORIDE
     Dosage: 2 MILLIGRAM
     Route: 065
  3. SUBOXONE [Suspect]
     Active Substance: BUPRENORPHINE HYDROCHLORIDE\NALOXONE HYDROCHLORIDE
     Dosage: 0.13 MILLIGRAM
     Route: 065

REACTIONS (6)
  - Inappropriate schedule of product discontinuation [Not Recovered/Not Resolved]
  - Dyskinesia [Unknown]
  - Drug withdrawal syndrome [Not Recovered/Not Resolved]
  - Dyspnoea [Unknown]
  - Wrong technique in product usage process [Not Recovered/Not Resolved]
  - Drug hypersensitivity [Unknown]
